FAERS Safety Report 23166892 (Version 1)
Quarter: 2023Q4

REPORT INFORMATION
  Report Type: Spontaneous
  Country: FR (occurrence: FR)
  Receive Date: 20231109
  Receipt Date: 20231109
  Transmission Date: 20240109
  Serious: Yes (Hospitalization)
  Sender: FDA-Public Use
  Company Number: FR-SUN PHARMACEUTICAL INDUSTRIES LTD-2023RR-417370

PATIENT
  Age: 73 Year
  Sex: Male
  Weight: 79 kg

DRUGS (2)
  1. ESOMEPRAZOLE [Suspect]
     Active Substance: ESOMEPRAZOLE
     Indication: Gastric ulcer
     Dosage: 40 MILLIGRAM, DAILY
     Route: 048
     Dates: start: 20230620
  2. HYPERICUM PERFORATUM WHOLE [Suspect]
     Active Substance: HYPERICUM PERFORATUM WHOLE
     Indication: Depression
     Dosage: UNK
     Route: 048
     Dates: start: 202304, end: 202307

REACTIONS (1)
  - Acquired haemophilia [Not Recovered/Not Resolved]

NARRATIVE: CASE EVENT DATE: 20230701
